FAERS Safety Report 4638529-3 (Version None)
Quarter: 2005Q2

REPORT INFORMATION
  Report Type: 
  Country: None (occurrence: None)
  Receive Date: 20050418
  Receipt Date: 20050418
  Transmission Date: 20051028
  Serious: No
  Sender: FDA-Public Use
  Company Number: None

PATIENT
  Sex: Female
  Weight: 58.9676 kg

DRUGS (1)
  1. COLGATE TOTAL [Suspect]
     Dosage: TWICE DAILY DENTAL
     Route: 004
     Dates: start: 20050410, end: 20050413

REACTIONS (2)
  - DYSGEUSIA [None]
  - ORAL DISCOMFORT [None]
